FAERS Safety Report 19010080 (Version 1)
Quarter: 2021Q1

REPORT INFORMATION
  Report Type: Spontaneous
  Country: US (occurrence: US)
  Receive Date: 20210316
  Receipt Date: 20210316
  Transmission Date: 20210420
  Serious: No
  Sender: FDA-Public Use
  Company Number: US-SA-2021SA067156

PATIENT
  Age: 67 Year
  Sex: Female

DRUGS (1)
  1. XYZAL [Suspect]
     Active Substance: LEVOCETIRIZINE DIHYDROCHLORIDE
     Indication: HYPERSENSITIVITY
     Route: 065
     Dates: start: 20210222, end: 20210222

REACTIONS (4)
  - Insomnia [Unknown]
  - Psychomotor hyperactivity [Unknown]
  - Product label issue [Unknown]
  - Intentional product misuse [Unknown]
